FAERS Safety Report 14547386 (Version 6)
Quarter: 2018Q2

REPORT INFORMATION
  Report Type: Report from Study
  Country: US (occurrence: US)
  Receive Date: 20180219
  Receipt Date: 20180622
  Transmission Date: 20180711
  Serious: Yes (Hospitalization)
  Sender: FDA-Public Use
  Company Number: US-PFIZER INC-2018010319

PATIENT
  Age: 63 Year
  Sex: Female

DRUGS (3)
  1. IBRANCE [Suspect]
     Active Substance: PALBOCICLIB
     Dosage: 125 MG, CYCLIC (DAILY, 3 WEEKS ON/1 WEEK OFF)
     Route: 048
     Dates: start: 20171228, end: 20180210
  2. IBRANCE [Suspect]
     Active Substance: PALBOCICLIB
     Indication: BREAST CANCER
     Dosage: 100 MG, CYCLIC (DAILY, 3 WEEKS ON/1 WEEK OFF)
     Route: 048
     Dates: start: 20171228
  3. IBRANCE [Suspect]
     Active Substance: PALBOCICLIB
     Dosage: 100 MG, CYCLIC (DAILY; 3 WEEKS ON/1 WEEK OFF/21 DAYS ON/7 DAYS OFF)
     Route: 048
     Dates: start: 20180305, end: 20180615

REACTIONS (18)
  - Rash [Recovering/Resolving]
  - Brain oedema [Recovering/Resolving]
  - Neck pain [Recovering/Resolving]
  - Pneumonia [Recovering/Resolving]
  - Balance disorder [Recovering/Resolving]
  - Diarrhoea [Recovering/Resolving]
  - Noninfective encephalitis [Recovering/Resolving]
  - Dizziness [Recovering/Resolving]
  - Bone marrow failure [Recovering/Resolving]
  - Neoplasm progression [Unknown]
  - Back pain [Recovering/Resolving]
  - Anxiety [Recovering/Resolving]
  - Depressed mood [Unknown]
  - Fatigue [Recovering/Resolving]
  - Asthenia [Unknown]
  - Gait disturbance [Recovering/Resolving]
  - Sleep disorder [Unknown]
  - Muscular weakness [Unknown]

NARRATIVE: CASE EVENT DATE: 2017
